FAERS Safety Report 10050126 (Version 1)
Quarter: 2014Q1

REPORT INFORMATION
  Report Type: Spontaneous
  Country: US (occurrence: None)
  Receive Date: 20140331
  Receipt Date: 20140331
  Transmission Date: 20141002
  Serious: Yes (Disabling)
  Sender: FDA-Public Use
  Company Number: None

PATIENT
  Age: 40 Year
  Sex: Male
  Weight: 79.38 kg

DRUGS (2)
  1. LEVAQUIN [Suspect]
     Indication: COUGH
     Dosage: 14 ONE DAILY TAKEN BY MOUTH
     Route: 048
     Dates: start: 20130926, end: 20131005
  2. PREDNISONE [Suspect]
     Indication: NASOPHARYNGITIS
     Dosage: 36 TAPER DOWN TAKEN BY MOUTH
     Route: 048
     Dates: start: 20130926, end: 20131004

REACTIONS (5)
  - Hyperhidrosis [None]
  - Crepitations [None]
  - Pain in extremity [None]
  - Pain in extremity [None]
  - Feeling of body temperature change [None]
